FAERS Safety Report 7217017-4 (Version None)
Quarter: 2011Q1

REPORT INFORMATION
  Report Type: 
  Country: None (occurrence: None)
  Receive Date: 20110105
  Receipt Date: 20110105
  Transmission Date: 20110831
  Serious: Yes (Other)
  Sender: FDA-Public Use
  Company Number: None

PATIENT
  Sex: Female
  Weight: 96.4 kg

DRUGS (2)
  1. SIMVASTATIN [Suspect]
     Indication: PROPHYLAXIS
     Dosage: 10 MG DAILY BY MOUTH
     Route: 048
     Dates: start: 20080101, end: 20101207
  2. SIMVASTATIN [Suspect]
     Indication: BLOOD CHOLESTEROL INCREASED
     Dosage: 10 MG DAILY BY MOUTH
     Route: 048
     Dates: start: 20080101, end: 20101207

REACTIONS (6)
  - URTICARIA [None]
  - PAIN IN EXTREMITY [None]
  - ARTHRALGIA [None]
  - ABDOMINAL PAIN UPPER [None]
  - ASTHENIA [None]
  - CONSTIPATION [None]
